FAERS Safety Report 7398552-5 (Version None)
Quarter: 2011Q2

REPORT INFORMATION
  Report Type: 
  Country: None (occurrence: None)
  Receive Date: 20110407
  Receipt Date: 20110328
  Transmission Date: 20111010
  Serious: No
  Sender: FDA-Public Use
  Company Number: US-BIOGENIDEC-2011BI011710

PATIENT
  Sex: Female

DRUGS (2)
  1. TYSABRI [Suspect]
     Indication: MULTIPLE SCLEROSIS
     Route: 042
     Dates: start: 20101104
  2. OXYCODONE [Concomitant]
     Indication: BACK PAIN

REACTIONS (11)
  - MUSCULOSKELETAL DISORDER [None]
  - THYROID DISORDER [None]
  - REFLEXES ABNORMAL [None]
  - FATIGUE [None]
  - VITAMIN D DECREASED [None]
  - APATHY [None]
  - VITAMIN B12 DECREASED [None]
  - HYPERAESTHESIA [None]
  - ALOPECIA [None]
  - BLADDER SPASM [None]
  - BURNING SENSATION [None]
